FAERS Safety Report 9765705 (Version 1)
Quarter: 2013Q4

REPORT INFORMATION
  Report Type: Spontaneous
  Country: US (occurrence: US)
  Receive Date: 20131217
  Receipt Date: 20131217
  Transmission Date: 20140711
  Serious: No
  Sender: FDA-Public Use
  Company Number: US-BIOGENIDEC-2013BI113758

PATIENT
  Age: 82 Year
  Sex: Female

DRUGS (7)
  1. TECFIDERA [Suspect]
     Indication: MULTIPLE SCLEROSIS
     Route: 048
     Dates: start: 20131031
  2. TECFIDERA [Suspect]
     Indication: MULTIPLE SCLEROSIS
     Route: 048
  3. AVAPRO [Concomitant]
  4. VERAPAMIL [Concomitant]
  5. LEVOTHROID [Concomitant]
  6. ASPIRIN [Concomitant]
  7. GNP VITAMIN D [Concomitant]

REACTIONS (1)
  - Insomnia [Unknown]
